FAERS Safety Report 8719611 (Version 3)
Quarter: 2012Q4

REPORT INFORMATION
  Report Type: 
  Country: DE (occurrence: DE)
  Receive Date: 20120813
  Receipt Date: 20121029
  Transmission Date: 20130627
  Serious: Yes (Hospitalization)
  Sender: FDA-Public Use
  Company Number: DE-JNJFOC-20120710701

PATIENT
  Age: 79 Year
  Sex: Male

DRUGS (1)
  1. ZYTIGA [Suspect]
     Indication: PRODUCT USED FOR UNKNOWN INDICATION
     Route: 048

REACTIONS (3)
  - Ileus [Unknown]
  - Abdominal pain upper [Unknown]
  - Nausea [Unknown]
